FAERS Safety Report 10508930 (Version 1)
Quarter: 2014Q3

REPORT INFORMATION
  Report Type: Spontaneous
  Country: US (occurrence: None)
  Receive Date: 20140915
  Receipt Date: 20140915
  Transmission Date: 20150326
  Serious: Yes (Other)
  Sender: FDA-Public Use
  Company Number: 2014-US-007654

PATIENT
  Age: 63 Year
  Sex: Female

DRUGS (2)
  1. XYREM [Suspect]
     Active Substance: SODIUM OXYBATE
     Indication: SLEEP DISORDER
     Route: 048
     Dates: start: 200610
  2. XYREM [Suspect]
     Active Substance: SODIUM OXYBATE
     Indication: PSYCHOGENIC PAIN DISORDER
     Route: 048
     Dates: start: 200610

REACTIONS (4)
  - Fibromyalgia [None]
  - Off label use [None]
  - Major depression [None]
  - Insomnia [None]
